FAERS Safety Report 6305668-0 (Version None)
Quarter: 2009Q3

REPORT INFORMATION
  Report Type: 
  Country: None (occurrence: None)
  Receive Date: 20090807
  Receipt Date: 20090727
  Transmission Date: 20100115
  Serious: Yes (Hospitalization)
  Sender: FDA-Public Use
  Company Number: TRP_06310_2009

PATIENT
  Sex: Male

DRUGS (4)
  1. INFERGEN [Suspect]
     Indication: HEPATITIS C
     Dosage: DF, 15 UG, QD, SUBCUTANEOUS
     Route: 058
     Dates: start: 20081020, end: 20081201
  2. INFERGEN [Suspect]
     Indication: HEPATITIS C
     Dosage: DF, 15 UG, QD, SUBCUTANEOUS
     Route: 058
     Dates: start: 20090220, end: 20090721
  3. RIBAPAK 200 MG (NOT SPECIFIED) [Suspect]
     Indication: HEPATITIS C
     Dosage: DF, 400 MG BID, ORAL
     Route: 048
     Dates: start: 20081020, end: 20081201
  4. RIBAPAK 200 MG (NOT SPECIFIED) [Suspect]
     Indication: HEPATITIS C
     Dosage: DF, 400 MG BID, ORAL
     Route: 048
     Dates: start: 20090220, end: 20090721

REACTIONS (9)
  - ANAEMIA [None]
  - BLOOD ERYTHROPOIETIN INCREASED [None]
  - BLOOD UREA INCREASED [None]
  - CARBON DIOXIDE DECREASED [None]
  - PLATELET COUNT DECREASED [None]
  - SERUM FERRITIN INCREASED [None]
  - THROMBOPHLEBITIS [None]
  - TRANSFERRIN SATURATION INCREASED [None]
  - WHITE BLOOD CELL COUNT DECREASED [None]
